FAERS Safety Report 7931087-7 (Version None)
Quarter: 2011Q4

REPORT INFORMATION
  Report Type: 
  Country: None (occurrence: None)
  Receive Date: 20111118
  Receipt Date: 20111118
  Transmission Date: 20120403
  Serious: Yes (Death, Hospitalization, Disabling, Other)
  Sender: FDA-Public Use
  Company Number: None

PATIENT
  Age: 82 Year

DRUGS (1)
  1. RECLAST [Suspect]
     Indication: OSTEOARTHRITIS
     Dosage: ONE TIME
     Dates: start: 20100801

REACTIONS (3)
  - TOOTHACHE [None]
  - BONE LOSS [None]
  - AMELOBLASTOMA [None]
